FAERS Safety Report 12784291 (Version 1)
Quarter: 2016Q3

REPORT INFORMATION
  Report Type: Spontaneous
  Country: GB (occurrence: GB)
  Receive Date: 20160927
  Receipt Date: 20160927
  Transmission Date: 20161109
  Serious: Yes (Other)
  Sender: FDA-Public Use
  Company Number: GB-BEH-200308805

PATIENT
  Age: 74 Year
  Sex: Male

DRUGS (3)
  1. CYCLIZINE [Concomitant]
     Active Substance: CYCLIZINE
     Dosage: DAILY DOSE QUANTITY: 50, DAILY DOSE UNIT: MG
     Route: 042
  2. DIAMORPHINE [Concomitant]
     Active Substance: DIACETYLMORPHINE
     Dosage: DAILY DOSE QUANTITY: 5, DAILY DOSE UNIT: MG
     Route: 042
  3. STREPTOKINASE [Suspect]
     Active Substance: STREPTOKINASE
     Indication: MYOCARDIAL INFARCTION
     Dosage: DAILY DOSE QUANTITY: 1.5, DAILY DOSE UNIT: MIU

REACTIONS (5)
  - Hypopyon [Recovered/Resolved]
  - Eye pain [Recovered/Resolved]
  - Iridocyclitis [Recovered/Resolved]
  - Visual acuity reduced [Recovered/Resolved]
  - Ocular hyperaemia [Recovered/Resolved]
